FAERS Safety Report 4418131-9 (Version None)
Quarter: 2004Q3

REPORT INFORMATION
  Report Type: 
  Country: None (occurrence: None)
  Receive Date: 20040805
  Receipt Date: 20040805
  Transmission Date: 20050211
  Serious: Yes (Disabling)
  Sender: FDA-Public Use
  Company Number: None

PATIENT
  Sex: Female
  Weight: 87.0906 kg

DRUGS (2)
  1. DILATING EYE SPRAY - SEE BELOW  SPRAY = PHENYLEPHRINE 2.5% TROPECAMIDE [Suspect]
     Indication: CATARACT
     Dosage: SPRAY, X 2 ON CLOSED LID
     Route: 047
  2. DILATING EYE SPRAY - SEE BELOW  SPRAY = PHENYLEPHRINE 2.5% TROPECAMIDE [Suspect]
     Indication: EYE OPERATION
     Dosage: SPRAY, X 2 ON CLOSED LID
     Route: 047

REACTIONS (5)
  - CONJUNCTIVAL DISORDER [None]
  - CORNEAL EPITHELIUM DISORDER [None]
  - CORNEAL OPACITY [None]
  - EYE MOVEMENT DISORDER [None]
  - SKIN DESQUAMATION [None]
